FAERS Safety Report 9452940 (Version 2)
Quarter: 2013Q3

REPORT INFORMATION
  Report Type: Report from Study
  Country: PL (occurrence: PL)
  Receive Date: 20130812
  Receipt Date: 20130904
  Transmission Date: 20140515
  Serious: Yes (Death, Other)
  Sender: FDA-Public Use
  Company Number: PL-ASTELLAS-2013US008427

PATIENT
  Age: 64 Year
  Sex: Female

DRUGS (6)
  1. ERLOTINIB TABLET [Suspect]
     Indication: LUNG NEOPLASM MALIGNANT
     Dosage: 150 MG, UID/QD
     Dates: start: 201111, end: 201203
  2. METFORMAX [Concomitant]
     Indication: DIABETES MELLITUS
     Dosage: 850 MG, BID
     Route: 048
  3. LETROX [Concomitant]
     Indication: HYPOTHYROIDISM
     Dosage: 100 MG, UID/QD
     Route: 048
  4. BISOPROMERCK [Concomitant]
     Indication: HYPERTENSION
     Dosage: 10 MG, UID/QD
     Route: 048
  5. AMARYL [Concomitant]
     Indication: DIABETES MELLITUS
     Dosage: 2 MG, UID/QD
     Route: 048
  6. SIMVACARD [Concomitant]
     Indication: LIPIDS ABNORMAL
     Dosage: 20 MG, UID/QD
     Route: 048

REACTIONS (2)
  - Circulatory collapse [Fatal]
  - Malignant neoplasm progression [Not Recovered/Not Resolved]
